FAERS Safety Report 5240487-8 (Version None)
Quarter: 2007Q1

REPORT INFORMATION
  Report Type: 
  Country: None (occurrence: None)
  Receive Date: 20070219
  Receipt Date: 20070215
  Transmission Date: 20070707
  Serious: Yes (Hospitalization)
  Sender: FDA-Public Use
  Company Number: US-GLAXOSMITHKLINE-A0639728A

PATIENT
  Sex: Male

DRUGS (2)
  1. VALACYCLOVIR [Suspect]
     Indication: DRUG USE FOR UNKNOWN INDICATION
     Route: 048
     Dates: start: 20070214
  2. CHOLESTYRAMINE [Concomitant]

REACTIONS (1)
  - HYPONATRAEMIA [None]
